FAERS Safety Report 11366101 (Version 1)
Quarter: 2015Q3

REPORT INFORMATION
  Report Type: Spontaneous
  Country: CN (occurrence: CN)
  Receive Date: 20150811
  Receipt Date: 20150811
  Transmission Date: 20151125
  Serious: Yes (Hospitalization)
  Sender: FDA-Public Use
  Company Number: CN-B.I. PHARMACEUTICALS,INC./RIDGEFIELD-2015-BI-42949CS

PATIENT
  Age: 64 Year
  Sex: Female

DRUGS (5)
  1. ATROVENT [Suspect]
     Active Substance: IPRATROPIUM BROMIDE
     Indication: ASTHMA
     Dosage: 1 ANZ
     Route: 042
     Dates: start: 20150803, end: 20150803
  2. AMBROXOL HYDRICHLORIDE [Concomitant]
     Indication: ASTHMA
     Dosage: 3 ANZ
     Route: 042
     Dates: start: 20150803, end: 20150803
  3. ATROVENT [Suspect]
     Active Substance: IPRATROPIUM BROMIDE
     Indication: NASOPHARYNGITIS
  4. CEFOXIFIN SODIUM [Concomitant]
     Indication: ASTHMA
     Dosage: 4 ANZ
     Route: 042
     Dates: start: 20150803, end: 20150803
  5. BUDESONIDE. [Suspect]
     Active Substance: BUDESONIDE
     Indication: ASTHMA
     Dosage: 1 ANZ
     Route: 042
     Dates: start: 20150803, end: 20150803

REACTIONS (6)
  - Blood pressure increased [Not Recovered/Not Resolved]
  - Flushing [Not Recovered/Not Resolved]
  - Vision blurred [Not Recovered/Not Resolved]
  - Feeling hot [Not Recovered/Not Resolved]
  - Incorrect route of drug administration [Unknown]
  - Dry mouth [Not Recovered/Not Resolved]

NARRATIVE: CASE EVENT DATE: 20150803
